FAERS Safety Report 4668666-9 (Version None)
Quarter: 2005Q2

REPORT INFORMATION
  Report Type: 
  Country: None (occurrence: None)
  Receive Date: 20050518
  Receipt Date: 20050426
  Transmission Date: 20051028
  Serious: Yes (Other)
  Sender: FDA-Public Use
  Company Number: A0549034A

PATIENT
  Age: 64 Year
  Sex: Female
  Weight: 67.1777 kg

DRUGS (7)
  1. WELLBUTRIN XL [Suspect]
     Indication: DEPRESSION
     Dosage: PER DAY/ ORAL
     Route: 048
     Dates: start: 20041214
  2. SERTRALINE HYDROCHLORIDE [Concomitant]
  3. THYROXINE SODIUM [Concomitant]
  4. LOVASTATIN [Concomitant]
  5. QUINAPRIL HCL [Concomitant]
  6. OESTRADIOL [Concomitant]
  7. MULTI-VITAMIN [Concomitant]

REACTIONS (3)
  - RECTAL HAEMORRHAGE [None]
  - RECTAL POLYP [None]
  - STOOL ANALYSIS ABNORMAL [None]
